FAERS Safety Report 19030510 (Version 1)
Quarter: 2021Q1

REPORT INFORMATION
  Report Type: Spontaneous
  Country: US (occurrence: US)
  Receive Date: 20210318
  Receipt Date: 20210318
  Transmission Date: 20210420
  Serious: Yes (Hospitalization)
  Sender: FDA-Public Use
  Company Number: None

PATIENT
  Age: 72 Year
  Sex: Male
  Weight: 105.75 kg

DRUGS (9)
  1. BENADRYL [Suspect]
     Active Substance: DIPHENHYDRAMINE HYDROCHLORIDE
     Indication: SWOLLEN TONGUE
     Dosage: ?          QUANTITY:5 TABLET(S);?
     Route: 048
     Dates: start: 20201128, end: 20210116
  2. UPROPION 1X300MG [Concomitant]
  3. SERTRAINE 2X 100MG [Concomitant]
  4. B012 W/CALCIUM [Concomitant]
  5. COENZYME Q10 [Concomitant]
     Active Substance: DIETARY SUPPLEMENT\UBIDECARENONE
  6. ROSUVQSTATIN 1X150MG [Concomitant]
  7. CARBAMAZEPINE 1X200MG TH FOLLOWING ONLY ONCE A WEEK TURLICITY 1X 150MG [Concomitant]
  8. LEVOTHROXINE 2X125MG [Concomitant]
  9. VITAMIN D?2 1X125MG [Concomitant]

REACTIONS (5)
  - Sleep talking [None]
  - Nervousness [None]
  - Fall [None]
  - Abnormal behaviour [None]
  - Rib fracture [None]

NARRATIVE: CASE EVENT DATE: 20210115
